FAERS Safety Report 5513010-8 (Version None)
Quarter: 2007Q4

REPORT INFORMATION
  Report Type: 
  Country: None (occurrence: None)
  Receive Date: 20071112
  Receipt Date: 20071102
  Transmission Date: 20080405
  Serious: Yes (Hospitalization)
  Sender: FDA-Public Use
  Company Number: CA-AMGEN-US251217

PATIENT
  Sex: Male

DRUGS (3)
  1. PANITUMUMAB [Suspect]
     Indication: SQUAMOUS CELL CARCINOMA
     Route: 042
     Dates: start: 20071023, end: 20071023
  2. CISPLATIN [Concomitant]
  3. FLUOROURACIL [Concomitant]

REACTIONS (2)
  - DEHYDRATION [None]
  - NEUTROPENIA [None]
